APPROVED DRUG PRODUCT: ISOSULFAN BLUE
Active Ingredient: ISOSULFAN BLUE
Strength: 50MG/5ML (10MG/ML)
Dosage Form/Route: SOLUTION;SUBCUTANEOUS
Application: A090874 | Product #001 | TE Code: AP
Applicant: MYLAN INSTITUTIONAL LLC
Approved: Jul 20, 2010 | RLD: No | RS: Yes | Type: RX